FAERS Safety Report 16564045 (Version 1)
Quarter: 2019Q3

REPORT INFORMATION
  Report Type: Spontaneous
  Country: JP (occurrence: JP)
  Receive Date: 20190712
  Receipt Date: 20190712
  Transmission Date: 20191004
  Serious: Yes (Other)
  Sender: FDA-Public Use
  Company Number: JP-AMGEN-JPNSP2019099850

PATIENT
  Age: 69 Year
  Sex: Male
  Weight: 64.4 kg

DRUGS (12)
  1. REMITCH [Concomitant]
     Active Substance: NALFURAFINE HYDROCHLORIDE
     Dosage: 2.5 MICROGRAM, QD (2.5 UG, EVERYDAY)
     Route: 048
  2. AMLODIPINE [Concomitant]
     Active Substance: AMLODIPINE BESYLATE
     Dosage: UNK, EVENING; 5 MG (DIALYSIS DATE), MORNING AND EVENING; 5 MG, Q12H (NON-DIALYSIS DATE)
     Route: 048
  3. ARTIST [Concomitant]
     Active Substance: CARVEDILOL
     Dosage: 10 MILLIGRAM, BID (10 MG, Q12H)
     Route: 048
  4. RENAGEL [Concomitant]
     Active Substance: SEVELAMER HYDROCHLORIDE
     Dosage: 750 MILLIGRAM, TID (750 MG, Q8H)
     Route: 048
  5. FOSRENOL [Concomitant]
     Active Substance: LANTHANUM CARBONATE
     Dosage: 750 MILLIGRAM, TID (750 MG, Q8H)
     Route: 048
  6. PARSABIV [Suspect]
     Active Substance: ETELCALCETIDE HYDROCHLORIDE
     Indication: HYPERPARATHYROIDISM SECONDARY
     Dosage: 2.5 MILLIGRAM, 3 TIMES/WK (2.5 MG, Q56H)
     Route: 042
     Dates: start: 20180725
  7. NEXIUM [Concomitant]
     Active Substance: ESOMEPRAZOLE MAGNESIUM
     Dosage: 20 MILLIGRAM, QD (20 MG, EVERYDAY)
     Route: 048
  8. PURSENNID EX-LAX [SENNOSIDE A+B CALCIUM] [Concomitant]
     Dosage: 48 MILLIGRAM, QD (48 MG, EVERYDAY, (DIALYSIS DATE AND SATURDAY)
     Route: 048
  9. LONGES [Concomitant]
     Active Substance: LISINOPRIL
     Dosage: 10 MILLIGRAM, QD (10 MG, EVERYDAY)
     Route: 048
  10. GLAKAY [Concomitant]
     Active Substance: MENATETRENONE
     Dosage: 15 MILLIGRAM, TID (15 MG, Q8H)
     Route: 048
  11. CARDENALIN [Concomitant]
     Active Substance: DOXAZOSIN MESYLATE
     Dosage: MORNING; 2 MG (NON-DIALYSIS DATE), EVENING; 2 MG
     Route: 048
  12. OXAROL [Concomitant]
     Active Substance: MAXACALCITOL
     Dosage: 5 MICROGRAM, 3 TIMES/WK (5 UG, Q56H)
     Route: 042
     Dates: start: 20180530

REACTIONS (3)
  - Enterocolitis [Recovering/Resolving]
  - Dyspepsia [Recovering/Resolving]
  - Mass [Recovered/Resolved]

NARRATIVE: CASE EVENT DATE: 20190118
